FAERS Safety Report 8057041-5 (Version None)
Quarter: 2012Q1

REPORT INFORMATION
  Report Type: 
  Country: None (occurrence: None)
  Receive Date: 20120119
  Receipt Date: 20110907
  Transmission Date: 20120608
  Serious: No
  Sender: FDA-Public Use
  Company Number: US-SANOFI-AVENTIS-2011SA059292

PATIENT
  Age: 77 Year
  Sex: Female

DRUGS (1)
  1. LASIX [Suspect]
     Indication: HYPERTENSION
     Route: 065

REACTIONS (2)
  - VAGINAL DISORDER [None]
  - VULVOVAGINAL PRURITUS [None]
